FAERS Safety Report 17529491 (Version 1)
Quarter: 2020Q1

REPORT INFORMATION
  Report Type: Spontaneous
  Country: GB (occurrence: GB)
  Receive Date: 20200311
  Receipt Date: 20200311
  Transmission Date: 20200409
  Serious: Yes (Disabling, Congenital Anomaly, Other)
  Sender: FDA-Public Use
  Company Number: GB-MYLANLABS-2020M1026179

PATIENT
  Age: 64 Year
  Sex: Female
  Weight: 57 kg

DRUGS (9)
  1. ALENDRONATE [Suspect]
     Active Substance: ALENDRONATE SODIUM
     Indication: PRODUCT USED FOR UNKNOWN INDICATION
     Dates: start: 20130510, end: 20191114
  2. CHLORAMPHENICOL [Concomitant]
     Active Substance: CHLORAMPHENICOL
     Dosage: APPLY FOR 5 DAYS.
     Dates: start: 20191101
  3. COCODAMOL [Concomitant]
     Active Substance: ACETAMINOPHEN\CODEINE PHOSPHATE
     Dosage: UP TO FOUR TIMES A DAY, 8MG/500MG
     Dates: start: 20191101
  4. NAPROXEN. [Concomitant]
     Active Substance: NAPROXEN
     Dosage: WITH FOOD
     Dates: start: 20191101
  5. CARMELLOSE [Concomitant]
     Dosage: 1 TO 2 DROPS, PRN
     Dates: start: 20191126
  6. LEVOTHYROXINE. [Concomitant]
     Active Substance: LEVOTHYROXINE
     Dosage: EVERY OTHER DAY, TAKE EVERY DAY, 25 AND 50MG
     Dates: start: 20191223
  7. CALCEOS [Concomitant]
     Active Substance: CALCIUM CARBONATE\CHOLECALCIFEROL
     Dosage: 500MG/400UNIT
     Dates: start: 20191223
  8. FLUCLOXACILLIN [Concomitant]
     Active Substance: FLUCLOXACILLIN
     Dosage: 1000 MILLIGRAM, QD
     Dates: start: 20191126
  9. LANSOPRAZOLE. [Concomitant]
     Active Substance: LANSOPRAZOLE
     Dosage: IN THE MORNING WHEN TAKING NAPROXEN
     Dates: start: 20191101

REACTIONS (4)
  - Congenital bowing of long bones [Unknown]
  - Pain in extremity [Unknown]
  - Stress fracture [Recovering/Resolving]
  - Arthralgia [Unknown]

NARRATIVE: CASE EVENT DATE: 20191114
